FAERS Safety Report 5817009-3 (Version None)
Quarter: 2008Q3

REPORT INFORMATION
  Report Type: 
  Country: None (occurrence: None)
  Receive Date: 20080722
  Receipt Date: 20080131
  Transmission Date: 20090109
  Serious: No
  Sender: FDA-Public Use
  Company Number: US-BRISTOL-MYERS SQUIBB COMPANY-14106892

PATIENT

DRUGS (1)
  1. CEENU [Suspect]

REACTIONS (4)
  - ARRHYTHMIA [None]
  - NEUROLOGICAL EXAMINATION ABNORMAL [None]
  - OVERDOSE [None]
  - RASH [None]
